FAERS Safety Report 9165058 (Version 3)
Quarter: 2013Q3

REPORT INFORMATION
  Report Type: Spontaneous
  Country: AU (occurrence: None)
  Receive Date: 20130227
  Receipt Date: 20130910
  Transmission Date: 20140515
  Serious: Yes (Other)
  Sender: FDA-Public Use
  Company Number: AUR-APL-2013-01810

PATIENT
  Age: 46 Year
  Sex: Female

DRUGS (3)
  1. RISPERIDONE [Suspect]
     Indication: SCHIZOAFFECTIVE DISORDER
     Route: 048
  2. QUETIAPINE (QUETIAPINE) [Suspect]
     Indication: SCHIZOAFFECTIVE DISORDER
     Dosage: 800 MG, 1 D, UNKNOWN
  3. SODIUM VALPROATE (VALPROATE SODIUM) [Suspect]
     Indication: SCHIZOAFFECTIVE DISORDER

REACTIONS (3)
  - Galactorrhoea [None]
  - Nightmare [None]
  - Anxiety [None]
